FAERS Safety Report 17996006 (Version 1)
Quarter: 2020Q3

REPORT INFORMATION
  Report Type: Spontaneous
  Country: US (occurrence: US)
  Receive Date: 20200708
  Receipt Date: 20200708
  Transmission Date: 20201103
  Serious: No
  Sender: FDA-Public Use
  Company Number: US-GALDERMA-US2020024074

PATIENT
  Age: 40 Year
  Sex: Female

DRUGS (1)
  1. AKLIEF [Suspect]
     Active Substance: TRIFAROTENE
     Indication: ACNE
     Dosage: 0.005%
     Route: 061
     Dates: start: 20200506, end: 20200511

REACTIONS (2)
  - Application site discolouration [Not Recovered/Not Resolved]
  - Application site pain [Not Recovered/Not Resolved]

NARRATIVE: CASE EVENT DATE: 20200510
